FAERS Safety Report 9738533 (Version 1)
Quarter: 2013Q4

REPORT INFORMATION
  Report Type: Spontaneous
  Country: BR (occurrence: BR)
  Receive Date: 20131209
  Receipt Date: 20131209
  Transmission Date: 20140711
  Serious: Yes (Death)
  Sender: FDA-Public Use
  Company Number: BR-PFIZER INC-2013347817

PATIENT
  Age: 45 Year
  Sex: Male

DRUGS (1)
  1. CELEBRA [Suspect]
     Dosage: 200 MG (1 CAPSULE), 2X/DAY
     Route: 048
     Dates: start: 20121212

REACTIONS (1)
  - Road traffic accident [Fatal]
